FAERS Safety Report 21657328 (Version 6)
Quarter: 2023Q2

REPORT INFORMATION
  Report Type: Spontaneous
  Country: IN (occurrence: IN)
  Receive Date: 20221129
  Receipt Date: 20230628
  Transmission Date: 20230722
  Serious: Yes (Hospitalization)
  Sender: FDA-Public Use
  Company Number: IN-PFIZER INC-PV202200112040

PATIENT
  Age: 66 Year
  Sex: Female

DRUGS (4)
  1. PALBOCICLIB [Suspect]
     Active Substance: PALBOCICLIB
     Indication: HER2 negative breast cancer
     Dosage: 125 MG
     Route: 048
  2. PALBOCICLIB [Suspect]
     Active Substance: PALBOCICLIB
     Dosage: 125 MG, 1X/DAY(FOR 20 DAYS)
     Route: 048
  3. FULVESTRANT [Concomitant]
     Active Substance: FULVESTRANT
     Dosage: UNK
  4. FULVESTRANT [Concomitant]
     Active Substance: FULVESTRANT
     Dosage: 500 MG

REACTIONS (2)
  - Malaise [Unknown]
  - Off label use [Unknown]
